FAERS Safety Report 11917845 (Version 1)
Quarter: 2016Q1

REPORT INFORMATION
  Report Type: Spontaneous
  Country: AU (occurrence: AU)
  Receive Date: 20160114
  Receipt Date: 20160114
  Transmission Date: 20160526
  Serious: Yes (Life-Threatening, Other)
  Sender: FDA-Public Use
  Company Number: AU-ROXANE LABORATORIES, INC.-2016-RO-00038RO

PATIENT
  Age: 0 Day
  Sex: Male
  Weight: 3.61 kg

DRUGS (2)
  1. LAMOTRIGINE. [Suspect]
     Active Substance: LAMOTRIGINE
     Indication: FOETAL EXPOSURE DURING PREGNANCY
     Route: 064
  2. QUETIAPINE FUMARATE 50 MG, 100 MG, 200 MG, 300 MG, AND 400 MG [Suspect]
     Active Substance: QUETIAPINE FUMARATE
     Indication: FOETAL EXPOSURE DURING PREGNANCY
     Route: 064

REACTIONS (3)
  - Cardiac arrest neonatal [Recovered/Resolved]
  - Neonatal behavioural syndrome [Unknown]
  - Drug withdrawal syndrome neonatal [Unknown]
